FAERS Safety Report 7933386-1 (Version None)
Quarter: 2011Q4

REPORT INFORMATION
  Report Type: 
  Country: None (occurrence: None)
  Receive Date: 20111122
  Receipt Date: 20111122
  Transmission Date: 20120403
  Serious: No
  Sender: FDA-Public Use
  Company Number: None

PATIENT
  Age: 72 Year
  Sex: Male
  Weight: 87.996 kg

DRUGS (1)
  1. AMLODIPINE [Suspect]
     Indication: HYPERTENSION
     Dosage: 1 TABLET AM, 1/2 TABLET PM
     Route: 050
     Dates: start: 20111007, end: 20111008

REACTIONS (1)
  - HEADACHE [None]
